FAERS Safety Report 7316357-8 (Version None)
Quarter: 2011Q1

REPORT INFORMATION
  Report Type: 
  Country: None (occurrence: None)
  Receive Date: 20110225
  Receipt Date: 20110221
  Transmission Date: 20110831
  Serious: Yes (Death)
  Sender: FDA-Public Use
  Company Number: IT-ASTRAZENECA-2011SE09641

PATIENT

DRUGS (3)
  1. LUXORAL [Concomitant]
     Route: 048
     Dates: start: 20110203, end: 20110218
  2. IRESSA [Suspect]
     Indication: NON-SMALL CELL LUNG CANCER
     Route: 048
     Dates: start: 20101206, end: 20110218
  3. CARBAMAZEPINE [Concomitant]
     Route: 048
     Dates: start: 20050801, end: 20110218

REACTIONS (1)
  - SUBDURAL HAEMATOMA [None]
